FAERS Safety Report 9519704 (Version 1)
Quarter: 2013Q3

REPORT INFORMATION
  Report Type: Spontaneous
  Country: US (occurrence: None)
  Receive Date: 20130911
  Receipt Date: 20130911
  Transmission Date: 20140515
  Serious: Yes (Life-Threatening, Hospitalization)
  Sender: FDA-Public Use
  Company Number: None

PATIENT
  Age: 46 Year
  Sex: Female
  Weight: 97 kg

DRUGS (3)
  1. PEGINTERFERON [Suspect]
  2. RIBAVIRIN [Concomitant]
  3. BOCEPRAVIR [Concomitant]

REACTIONS (1)
  - Febrile neutropenia [None]
